FAERS Safety Report 9503961 (Version 1)
Quarter: 2013Q3

REPORT INFORMATION
  Report Type: Spontaneous
  Country: US (occurrence: None)
  Receive Date: 20130905
  Receipt Date: 20130905
  Transmission Date: 20140515
  Serious: Yes (Other)
  Sender: FDA-Public Use
  Company Number: None

PATIENT
  Age: 54 Year
  Sex: Female
  Weight: 104.33 kg

DRUGS (8)
  1. MIRAPEX ER [Suspect]
     Indication: RESTLESS LEGS SYNDROME
     Dosage: 1 PILL AT BEDTIME BY MOUTH
     Route: 048
     Dates: start: 201106, end: 201303
  2. LANSOPRAZOLE [Concomitant]
  3. CETIRIZINE [Concomitant]
  4. VYTORIN [Concomitant]
  5. FLUOXETINE [Concomitant]
  6. CLONAZEPAM [Concomitant]
  7. WELLBUTRIN XL [Concomitant]
  8. CALCIUM CITRATE [Concomitant]

REACTIONS (13)
  - Pathological gambling [None]
  - Local swelling [None]
  - Weight increased [None]
  - Obsessive thoughts [None]
  - Sleep disorder [None]
  - Crying [None]
  - Depression [None]
  - Headache [None]
  - Suicide attempt [None]
  - Loss of employment [None]
  - Feeling guilty [None]
  - Mood swings [None]
  - Irritability [None]
